FAERS Safety Report 14008450 (Version 1)
Quarter: 2017Q3

REPORT INFORMATION
  Report Type: Spontaneous
  Country: US (occurrence: US)
  Receive Date: 20170925
  Receipt Date: 20170925
  Transmission Date: 20171128
  Serious: Yes (Other)
  Sender: FDA-Public Use
  Company Number: None

PATIENT
  Age: 70 Year
  Weight: 82.35 kg

DRUGS (1)
  1. FINESTERIDE [Suspect]
     Active Substance: FINASTERIDE
     Indication: PROSTATOMEGALY
     Dosage: 1 DF DAILY ORAL
     Route: 048
     Dates: start: 20170127

REACTIONS (6)
  - Pruritus [None]
  - Testicular pain [None]
  - Sexual dysfunction [None]
  - Breast pain [None]
  - Depression [None]
  - Breast enlargement [None]
